FAERS Safety Report 15004341 (Version 2)
Quarter: 2018Q3

REPORT INFORMATION
  Report Type: Spontaneous
  Country: US (occurrence: US)
  Receive Date: 20180613
  Receipt Date: 20180903
  Transmission Date: 20181010
  Serious: No
  Sender: FDA-Public Use
  Company Number: US-PFIZER INC-2018239790

PATIENT
  Age: 76 Year
  Sex: Male

DRUGS (1)
  1. XELJANZ XR [Suspect]
     Active Substance: TOFACITINIB CITRATE
     Indication: RHEUMATOID ARTHRITIS
     Dosage: 11 MG, DAILY
     Route: 048

REACTIONS (4)
  - Intentional product misuse [Unknown]
  - Chronic obstructive pulmonary disease [Not Recovered/Not Resolved]
  - Tremor [Not Recovered/Not Resolved]
  - Depression [Not Recovered/Not Resolved]
